FAERS Safety Report 11942558 (Version 1)
Quarter: 2016Q1

REPORT INFORMATION
  Report Type: Spontaneous
  Country: US (occurrence: US)
  Receive Date: 20160125
  Receipt Date: 20160125
  Transmission Date: 20160526
  Serious: No
  Sender: FDA-Public Use
  Company Number: US-UNITED THERAPEUTICS-UNT-2015-006340

PATIENT
  Age: 50 Year
  Sex: Male
  Weight: 95.24 kg

DRUGS (11)
  1. ORENITRAM [Suspect]
     Active Substance: TREPROSTINIL
     Dosage: UNK
     Route: 048
  2. ORENITRAM [Suspect]
     Active Substance: TREPROSTINIL
     Dosage: UNK
     Route: 048
  3. ADEMPAS [Suspect]
     Active Substance: RIOCIGUAT
     Indication: PRODUCT USED FOR UNKNOWN INDICATION
     Dosage: UNKNOWN
     Route: 065
  4. ORENITRAM [Suspect]
     Active Substance: TREPROSTINIL
     Indication: PULMONARY HYPERTENSION
     Dosage: 0.75 MG, BID
     Route: 048
     Dates: start: 20150417
  5. ORENITRAM [Suspect]
     Active Substance: TREPROSTINIL
     Dosage: UNK
     Route: 048
  6. ORENITRAM [Suspect]
     Active Substance: TREPROSTINIL
     Dosage: 1.75 MG, BID
     Route: 048
     Dates: start: 20150428
  7. LETAIRIS [Concomitant]
     Active Substance: AMBRISENTAN
     Indication: PRODUCT USED FOR UNKNOWN INDICATION
  8. ORENITRAM [Suspect]
     Active Substance: TREPROSTINIL
     Dosage: UNK
     Route: 048
  9. COUMADIN [Concomitant]
     Active Substance: WARFARIN SODIUM
     Indication: PRODUCT USED FOR UNKNOWN INDICATION
  10. ORENITRAM [Suspect]
     Active Substance: TREPROSTINIL
     Dosage: 1.75 MG, TID
     Route: 048
     Dates: start: 20150428
  11. ORENITRAM [Suspect]
     Active Substance: TREPROSTINIL
     Dosage: UNK
     Route: 048

REACTIONS (19)
  - Hyperhidrosis [Unknown]
  - Hypotension [Unknown]
  - Chest pain [Unknown]
  - Dizziness [Unknown]
  - Flushing [Unknown]
  - Abdominal discomfort [Unknown]
  - Respiratory rate decreased [Unknown]
  - Heart rate increased [Unknown]
  - Nausea [Not Recovered/Not Resolved]
  - Vomiting [Unknown]
  - Pain in extremity [Recovered/Resolved]
  - Fatigue [Unknown]
  - Malaise [Unknown]
  - Somnolence [Unknown]
  - Dyspepsia [Unknown]
  - Blood pressure increased [Unknown]
  - Dyspnoea exertional [Recovered/Resolved]
  - Constipation [Unknown]
  - Palpitations [Unknown]

NARRATIVE: CASE EVENT DATE: 2015
